FAERS Safety Report 8260763-4 (Version None)
Quarter: 2012Q2

REPORT INFORMATION
  Report Type: 
  Country: None (occurrence: None)
  Receive Date: 20120405
  Receipt Date: 20120330
  Transmission Date: 20120825
  Serious: Yes (Other)
  Sender: FDA-Public Use
  Company Number: US-BIOGENIDEC-2012BI011426

PATIENT
  Sex: Female

DRUGS (1)
  1. AVONEX [Suspect]
     Indication: MULTIPLE SCLEROSIS
     Route: 030
     Dates: start: 20011101, end: 20050502

REACTIONS (4)
  - MATERNAL EXPOSURE DURING PREGNANCY [None]
  - UTERINE LEIOMYOMA [None]
  - CAESAREAN SECTION [None]
  - PREGNANCY [None]
